FAERS Safety Report 9396351 (Version 2)
Quarter: 2014Q1

REPORT INFORMATION
  Report Type: Spontaneous
  Country: US (occurrence: US)
  Receive Date: 20130711
  Receipt Date: 20140212
  Transmission Date: 20141002
  Serious: No
  Sender: FDA-Public Use
  Company Number: US-BIOGENIDEC-2013BI044435

PATIENT
  Sex: Female

DRUGS (2)
  1. AVONEX [Suspect]
     Indication: MULTIPLE SCLEROSIS
     Route: 030
     Dates: start: 20101101, end: 20111101
  2. AVONEX [Suspect]
     Indication: MULTIPLE SCLEROSIS
     Route: 030
     Dates: start: 20130725

REACTIONS (16)
  - Multiple sclerosis [Unknown]
  - Sensation of heaviness [Recovered/Resolved]
  - Drug intolerance [Not Recovered/Not Resolved]
  - Fall [Recovered/Resolved]
  - Peroneal nerve palsy [Recovered/Resolved]
  - Hypoaesthesia [Recovered/Resolved]
  - Loss of bladder sensation [Recovered/Resolved]
  - Band sensation [Recovered/Resolved]
  - Restless legs syndrome [Recovered/Resolved]
  - Dyskinesia [Recovered/Resolved]
  - Peripheral coldness [Recovered/Resolved]
  - Central nervous system lesion [Not Recovered/Not Resolved]
  - Balance disorder [Recovered/Resolved]
  - Muscle tightness [Recovered/Resolved]
  - Multiple sclerosis relapse [Recovered/Resolved]
  - Muscular weakness [Not Recovered/Not Resolved]
